FAERS Safety Report 8932082 (Version 1)
Quarter: 2012Q4

REPORT INFORMATION
  Report Type: 
  Country: JP (occurrence: JP)
  Receive Date: 20121128
  Receipt Date: 20121128
  Transmission Date: 20130627
  Serious: Yes (Hospitalization, Other)
  Sender: FDA-Public Use
  Company Number: JP-PFIZER INC-2012296360

PATIENT
  Age: 51 Year
  Sex: Male

DRUGS (9)
  1. ANCARON [Suspect]
     Indication: VENTRICULAR TACHYCARDIA
     Dosage: 200 mg, daily
     Route: 048
     Dates: end: 200704
  2. ANCARON [Suspect]
     Dosage: 100 mg, daily
     Route: 048
     Dates: start: 20071125
  3. ANCARON [Suspect]
     Dosage: 200 mg, daily
     Route: 048
     Dates: end: 2008
  4. FUROSEMIDE [Concomitant]
     Dosage: UNK
  5. ITOROL [Concomitant]
     Dosage: UNK
  6. SELOKEN [Concomitant]
     Dosage: UNK
  7. ZYLORIC [Concomitant]
     Dosage: UNK
  8. WARFARIN [Concomitant]
     Dosage: UNK
  9. RYTHMODAN [Concomitant]
     Dosage: UNK

REACTIONS (9)
  - Traumatic lung injury [Unknown]
  - Dyspnoea exertional [Unknown]
  - Interleukin-2 receptor increased [Unknown]
  - Cell marker increased [Unknown]
  - PO2 decreased [Unknown]
  - Neutrophil count increased [Unknown]
  - Lymphocyte count increased [Unknown]
  - CD4/CD8 ratio decreased [Unknown]
  - Lymphocytic infiltration [Unknown]
